FAERS Safety Report 10383082 (Version 1)
Quarter: 2014Q3

REPORT INFORMATION
  Report Type: Spontaneous
  Country: US (occurrence: US)
  Receive Date: 20140813
  Receipt Date: 20140813
  Transmission Date: 20150326
  Serious: No
  Sender: FDA-Public Use
  Company Number: US-SA-FABR-1003486

PATIENT
  Sex: Male

DRUGS (1)
  1. FABRAZYME [Suspect]
     Active Substance: AGALSIDASE BETA
     Indication: FABRY^S DISEASE
     Dosage: UNK
     Route: 042

REACTIONS (3)
  - Chills [Not Recovered/Not Resolved]
  - Tremor [Unknown]
  - Pyrexia [Unknown]

NARRATIVE: CASE EVENT DATE: 2013
